FAERS Safety Report 17685366 (Version 1)
Quarter: 2020Q2

REPORT INFORMATION
  Report Type: Spontaneous
  Country: US (occurrence: US)
  Receive Date: 20200420
  Receipt Date: 20200420
  Transmission Date: 20200714
  Serious: No
  Sender: FDA-Public Use
  Company Number: US-SA-2020SA100524

PATIENT
  Age: 60 Year
  Sex: Female

DRUGS (2)
  1. TOUJEO [Suspect]
     Active Substance: INSULIN GLARGINE
     Indication: TYPE 2 DIABETES MELLITUS
     Dosage: 80-90 IU, QD
     Route: 065
     Dates: start: 2015
  2. TOUJEO [Suspect]
     Active Substance: INSULIN GLARGINE
     Dosage: 60 IU, QD, DOSE DECREASED
     Route: 065

REACTIONS (5)
  - Blood glucose increased [Unknown]
  - Product storage error [Unknown]
  - Product contamination [Unknown]
  - Nausea [Recovering/Resolving]
  - Glycosylated haemoglobin increased [Unknown]
